FAERS Safety Report 9748759 (Version 3)
Quarter: 2014Q1

REPORT INFORMATION
  Report Type: Spontaneous
  Country: DE (occurrence: None)
  Receive Date: 20131209
  Receipt Date: 20140122
  Transmission Date: 20141002
  Serious: Yes (Disabling, Other)
  Sender: FDA-Public Use
  Company Number: AUR-APL-2013-10246

PATIENT
  Age: 71 Year
  Sex: Female
  Weight: 60.5 kg

DRUGS (2)
  1. MIRTAZAPINE [Suspect]
     Indication: DEPRESSION
     Route: 048
     Dates: start: 20111222
  2. TREVILOR RETARD [Suspect]
     Indication: DEPRESSION
     Dates: start: 201112

REACTIONS (4)
  - Glaucoma [None]
  - Macular oedema [None]
  - Retinal vein thrombosis [None]
  - Eye haemorrhage [None]
